FAERS Safety Report 4459474-2 (Version None)
Quarter: 2004Q3

REPORT INFORMATION
  Report Type: 
  Country: None (occurrence: None)
  Receive Date: 20040927
  Receipt Date: 20040915
  Transmission Date: 20050211
  Serious: Yes (Hospitalization)
  Sender: FDA-Public Use
  Company Number: GB-ABBOTT-04P-167-0273562-00

PATIENT
  Sex: Male

DRUGS (2)
  1. DEPAKOTE [Suspect]
     Indication: BIPOLAR DISORDER
     Dates: start: 20040101
  2. OLANZAPINE [Suspect]
     Indication: BIPOLAR DISORDER
     Dates: start: 20040101

REACTIONS (1)
  - DIABETIC KETOACIDOSIS [None]
